FAERS Safety Report 8435734-5 (Version None)
Quarter: 2012Q2

REPORT INFORMATION
  Report Type: 
  Country: None (occurrence: None)
  Receive Date: 20120614
  Receipt Date: 20120614
  Transmission Date: 20120825
  Serious: Yes (Death)
  Sender: FDA-Public Use
  Company Number: US-PFIZER INC-2004235700US

PATIENT
  Age: 23 Year

DRUGS (3)
  1. CALAN [Suspect]
     Route: 048
  2. DIGOXIN [Suspect]
     Route: 048
  3. METOPROLOL TARTRATE [Suspect]
     Route: 048

REACTIONS (3)
  - INTENTIONAL OVERDOSE [None]
  - MULTIPLE DRUG OVERDOSE INTENTIONAL [None]
  - COMPLETED SUICIDE [None]
